FAERS Safety Report 7335047-9 (Version None)
Quarter: 2011Q1

REPORT INFORMATION
  Report Type: 
  Country: None (occurrence: None)
  Receive Date: 20110307
  Receipt Date: 20110302
  Transmission Date: 20110831
  Serious: Yes (Hospitalization, Other)
  Sender: FDA-Public Use
  Company Number: US-JNJFOC-20100804852

PATIENT
  Sex: Male
  Weight: 104.33 kg

DRUGS (3)
  1. STEROIDS NOS [Suspect]
     Indication: MUSCULOSKELETAL PAIN
     Route: 065
  2. LEVAQUIN [Suspect]
     Indication: JOINT SWELLING
     Route: 048
  3. LEVAQUIN [Suspect]
     Indication: MUSCULOSKELETAL PAIN
     Route: 048

REACTIONS (7)
  - CONVULSION [None]
  - ROTATOR CUFF SYNDROME [None]
  - TENDON RUPTURE [None]
  - MUSCLE ATROPHY [None]
  - JOINT INJURY [None]
  - PAIN [None]
  - IMPAIRED DRIVING ABILITY [None]
